FAERS Safety Report 9454637 (Version 1)
Quarter: 2013Q3

REPORT INFORMATION
  Report Type: Spontaneous
  Country: US (occurrence: US)
  Receive Date: 20130812
  Receipt Date: 20130812
  Transmission Date: 20140515
  Serious: Yes (Other)
  Sender: FDA-Public Use
  Company Number: US-BRISTOL-MYERS SQUIBB COMPANY-19156918

PATIENT
  Age: 49 Year
  Sex: Female
  Weight: 56.69 kg

DRUGS (1)
  1. ABATACEPT SUBQ INJECTION 125MG/ML [Suspect]
     Indication: RHEUMATOID ARTHRITIS
     Dosage: LAST INJ:26-JUL-2013
     Route: 058

REACTIONS (6)
  - Pulmonary mass [Unknown]
  - Urinary tract infection [Recovered/Resolved]
  - Malaise [Unknown]
  - Dermatitis [Unknown]
  - Product quality issue [Unknown]
  - Drug dose omission [Unknown]
